FAERS Safety Report 4809402-2 (Version None)
Quarter: 2005Q4

REPORT INFORMATION
  Report Type: 
  Country: None (occurrence: None)
  Receive Date: 20051021
  Receipt Date: 20051012
  Transmission Date: 20060501
  Serious: Yes (Hospitalization, Other)
  Sender: FDA-Public Use
  Company Number: 2005142095

PATIENT
  Age: 41 Year
  Sex: Male
  Weight: 84 kg

DRUGS (2)
  1. DILANTIN [Suspect]
     Indication: CONVULSION
     Dosage: ORAL
     Route: 048
  2. TEMOZOLOMIDE (TEMOZOLOMIDE) [Suspect]
     Indication: ASTROCYTOMA
     Dosage: 5 DAYS (200 MG/M2), ORAL
     Route: 048
     Dates: start: 20050425

REACTIONS (5)
  - ANTICONVULSANT DRUG LEVEL BELOW THERAPEUTIC [None]
  - ASTROCYTOMA [None]
  - GRAND MAL CONVULSION [None]
  - PROCEDURAL COMPLICATION [None]
  - TREATMENT NONCOMPLIANCE [None]
